FAERS Safety Report 15586856 (Version 1)
Quarter: 2018Q4

REPORT INFORMATION
  Report Type: Spontaneous
  Country: US (occurrence: US)
  Receive Date: 20181101
  Receipt Date: 20181101
  Transmission Date: 20190205
  Serious: Yes (Hospitalization)
  Sender: FDA-Public Use
  Company Number: None

PATIENT
  Age: 69 Year
  Sex: Female
  Weight: 94.8 kg

DRUGS (2)
  1. DOXORUBICIN HYDROCHLORIDE. [Suspect]
     Active Substance: DOXORUBICIN HYDROCHLORIDE
     Dates: end: 20181015
  2. CYCLOPHOSPHAMIDE. [Suspect]
     Active Substance: CYCLOPHOSPHAMIDE
     Dates: end: 20181015

REACTIONS (9)
  - Syncope [None]
  - Laboratory test interference [None]
  - Diarrhoea [None]
  - Nausea [None]
  - Unresponsive to stimuli [None]
  - Decreased appetite [None]
  - Atrial fibrillation [None]
  - Urinary tract infection [None]
  - Neutropenia [None]

NARRATIVE: CASE EVENT DATE: 20181021
